FAERS Safety Report 7213592-4 (Version None)
Quarter: 2011Q1

REPORT INFORMATION
  Report Type: 
  Country: None (occurrence: None)
  Receive Date: 20110106
  Receipt Date: 20101215
  Transmission Date: 20110831
  Serious: No
  Sender: FDA-Public Use
  Company Number: US-B.I. PHARMACEUTICALS,INC./RIDGEFIELD-2010-BP-14652BP

PATIENT
  Sex: Male

DRUGS (14)
  1. CODEINE [Concomitant]
     Indication: ARTHRALGIA
     Dosage: 300 MG
     Route: 048
  2. LOVASTATIN [Concomitant]
     Indication: BLOOD CHOLESTEROL INCREASED
     Dosage: 40 MG
     Route: 048
  3. FINASTERIDE [Concomitant]
     Indication: PROSTATOMEGALY
     Dosage: 5 MG
     Route: 048
  4. TERAZOSIN HCL [Concomitant]
     Indication: PROSTATOMEGALY
     Dosage: 4 MG
     Route: 048
  5. AMLODIPINE [Concomitant]
     Indication: HYPERTENSION
     Dosage: 10 MG
     Route: 048
  6. FUROSEMIDE [Concomitant]
     Indication: HYPERTENSION
     Dosage: 40 MG
     Route: 048
  7. ADVAIR [Concomitant]
     Indication: CHRONIC OBSTRUCTIVE PULMONARY DISEASE
     Route: 055
  8. OMEPRAZOLE [Concomitant]
     Indication: GASTROOESOPHAGEAL REFLUX DISEASE
     Dosage: 20 MG
     Route: 048
  9. ALENDRONATE [Concomitant]
     Indication: OSTEOPOROSIS
     Dosage: 5 MG
     Route: 048
  10. PROVENTIL [Concomitant]
     Indication: CHRONIC OBSTRUCTIVE PULMONARY DISEASE
     Route: 055
  11. METOPROLOL [Concomitant]
     Indication: HYPERTENSION
     Dosage: 200 MG
     Route: 048
  12. GABAPENTIN [Concomitant]
     Indication: ARTHRALGIA
     Dosage: 600 MG
     Route: 048
  13. CYANOCOBALAMIN [Concomitant]
     Indication: PROPHYLAXIS
     Route: 048
  14. SPIRIVA [Suspect]
     Indication: CHRONIC OBSTRUCTIVE PULMONARY DISEASE
     Dosage: 18 MCG
     Route: 055
     Dates: start: 20100801

REACTIONS (1)
  - PROSTATIC SPECIFIC ANTIGEN INCREASED [None]
